FAERS Safety Report 17874630 (Version 3)
Quarter: 2020Q3

REPORT INFORMATION
  Report Type: Report from Study
  Country: US (occurrence: US)
  Receive Date: 20200609
  Receipt Date: 20200728
  Transmission Date: 20201103
  Serious: Yes (Other)
  Sender: FDA-Public Use
  Company Number: US-MYLANLABS-2020M1055110

PATIENT
  Age: 54 Year
  Sex: Male

DRUGS (1)
  1. CLOZAPINE. [Suspect]
     Active Substance: CLOZAPINE
     Indication: PRODUCT USED FOR UNKNOWN INDICATION
     Dosage: 100 MILLIGRAM, QHS
     Dates: end: 20200413

REACTIONS (7)
  - Haemoglobin decreased [Recovered/Resolved]
  - White blood cell count decreased [Recovered/Resolved]
  - Neutropenia [Recovered/Resolved]
  - Monocyte count increased [Recovered/Resolved]
  - Platelet count decreased [Recovering/Resolving]
  - Red cell distribution width increased [Recovered/Resolved]
  - Mean platelet volume increased [Recovered/Resolved]

NARRATIVE: CASE EVENT DATE: 20200413
